FAERS Safety Report 4661124-7 (Version None)
Quarter: 2005Q2

REPORT INFORMATION
  Report Type: 
  Country: None (occurrence: None)
  Receive Date: 20050428
  Receipt Date: 20040315
  Transmission Date: 20051028
  Serious: Yes (Other)
  Sender: FDA-Public Use
  Company Number: 361964

PATIENT
  Sex: Male

DRUGS (2)
  1. NAPROSYN [Suspect]
     Dosage: ORAL
     Route: 048
  2. IBUPROFEN [Suspect]
     Dosage: ORAL
     Route: 048

REACTIONS (2)
  - GASTROINTESTINAL ULCER HAEMORRHAGE [None]
  - ULCER HAEMORRHAGE [None]
